FAERS Safety Report 25982788 (Version 1)
Quarter: 2025Q4

REPORT INFORMATION
  Report Type: Spontaneous
  Country: US (occurrence: US)
  Receive Date: 20251031
  Receipt Date: 20251031
  Transmission Date: 20260117
  Serious: No
  Sender: BRISTOL MYERS SQUIBB
  Company Number: US-BRISTOL-MYERS SQUIBB COMPANY-2025-147955

PATIENT
  Age: 65 Year
  Sex: Female

DRUGS (1)
  1. POMALYST [Suspect]
     Active Substance: POMALIDOMIDE
     Indication: Plasma cell myeloma
     Dosage: TAKE 1 CAPSULE BY MOUTH 1 TIME A DAY IN THE MORNING FOR 21 DAYS ON THEN 7 DAYS OFF
     Route: 048
     Dates: start: 202509

REACTIONS (4)
  - Dry skin [Unknown]
  - Ocular discomfort [Unknown]
  - Muscular weakness [Unknown]
  - White blood cell count decreased [Unknown]
